FAERS Safety Report 23592926 (Version 25)
Quarter: 2024Q4

REPORT INFORMATION
  Report Type: Spontaneous
  Country: CA (occurrence: CA)
  Receive Date: 20240304
  Receipt Date: 20241120
  Transmission Date: 20250114
  Serious: Yes (Other)
  Sender: PFIZER
  Company Number: CA-PFIZER INC-PV202400019635

PATIENT
  Age: 66 Year
  Sex: Female
  Weight: 58.9 kg

DRUGS (14)
  1. ZIRABEV [Suspect]
     Active Substance: BEVACIZUMAB-BVZR
     Indication: Colorectal cancer metastatic
     Dosage: 304 MG, EVERY 2 WEEKS
     Dates: start: 20240208
  2. ZIRABEV [Suspect]
     Active Substance: BEVACIZUMAB-BVZR
     Dosage: 304 MG, EVERY 2 WEEKS
     Dates: start: 20240229
  3. ZIRABEV [Suspect]
     Active Substance: BEVACIZUMAB-BVZR
     Dosage: 285 MG
     Route: 042
     Dates: start: 20240328
  4. ZIRABEV [Suspect]
     Active Substance: BEVACIZUMAB-BVZR
     Dosage: 285 MG
     Route: 042
     Dates: start: 20240502
  5. ZIRABEV [Suspect]
     Active Substance: BEVACIZUMAB-BVZR
     Dosage: 285 MG
     Route: 042
     Dates: start: 20240523
  6. ZIRABEV [Suspect]
     Active Substance: BEVACIZUMAB-BVZR
     Dosage: 289 MG
     Route: 042
  7. ZIRABEV [Suspect]
     Active Substance: BEVACIZUMAB-BVZR
     Dosage: 289 MG (5 MG/KG, EVERY 2 WEEKS) (11.5ML)
     Route: 042
     Dates: start: 20240620, end: 20240620
  8. ZIRABEV [Suspect]
     Active Substance: BEVACIZUMAB-BVZR
     Dosage: 289 MG (5 MG/KG, EVERY 2 WEEKS)
     Route: 042
     Dates: start: 20240704
  9. ZIRABEV [Suspect]
     Active Substance: BEVACIZUMAB-BVZR
     Dosage: 5 MG/KG 290 MG EVERY 2 WEEKS
     Route: 042
     Dates: start: 20240718
  10. ZIRABEV [Suspect]
     Active Substance: BEVACIZUMAB-BVZR
     Dosage: 290 MG Q2 WEEKS
     Route: 042
     Dates: start: 20240808
  11. ZIRABEV [Suspect]
     Active Substance: BEVACIZUMAB-BVZR
     Dosage: 291 MG Q2 WEEKS
     Route: 042
     Dates: start: 20240905
  12. ZIRABEV [Suspect]
     Active Substance: BEVACIZUMAB-BVZR
     Dosage: 291 MG Q2 WEEKS
     Route: 042
     Dates: start: 20240926
  13. ZIRABEV [Suspect]
     Active Substance: BEVACIZUMAB-BVZR
     Dosage: 291 MG Q2 WEEKS
     Route: 042
     Dates: start: 20241010
  14. ZIRABEV [Suspect]
     Active Substance: BEVACIZUMAB-BVZR
     Dosage: 291 MG Q2 WEEKS
     Route: 042
     Dates: start: 20241024

REACTIONS (15)
  - Ileostomy [Unknown]
  - Diarrhoea [Recovered/Resolved]
  - Blood pressure fluctuation [Unknown]
  - Nausea [Recovered/Resolved]
  - Heart rate increased [Recovered/Resolved]
  - Respiratory rate increased [Unknown]
  - Cognitive disorder [Unknown]
  - Dyspnoea exertional [Recovering/Resolving]
  - Fatigue [Unknown]
  - Blood pressure systolic increased [Not Recovered/Not Resolved]
  - Blood creatinine increased [Unknown]
  - Productive cough [Unknown]
  - Tachypnoea [Recovering/Resolving]
  - Tachycardia [Recovering/Resolving]
  - Product dose omission issue [Unknown]

NARRATIVE: CASE EVENT DATE: 20240101
